FAERS Safety Report 8816928 (Version 1)
Quarter: 2012Q4

REPORT INFORMATION
  Report Type: Spontaneous
  Country: DK (occurrence: None)
  Receive Date: 20121002
  Receipt Date: 20121002
  Transmission Date: 20130627
  Serious: Yes (Disabling)
  Sender: FDA-Public Use
  Company Number: 2012MA011609

PATIENT
  Age: 34 Year
  Sex: Female

DRUGS (3)
  1. GABAPENTIN [Suspect]
     Route: 048
     Dates: start: 20120830
  2. LORATADINE [Concomitant]
  3. ST JOHNS WORT [Concomitant]

REACTIONS (4)
  - Hypoaesthesia oral [None]
  - Disturbance in attention [None]
  - Constipation [None]
  - Feeling drunk [None]
